FAERS Safety Report 12391022 (Version 3)
Quarter: 2016Q2

REPORT INFORMATION
  Report Type: Spontaneous
  Country: JP (occurrence: JP)
  Receive Date: 20160520
  Receipt Date: 20160531
  Transmission Date: 20160815
  Serious: Yes (Hospitalization, Other)
  Sender: FDA-Public Use
  Company Number: JP-PFIZER INC-2016217582

PATIENT
  Age: 81 Year
  Sex: Male

DRUGS (12)
  1. AMLODIPINE KAKEN [Concomitant]
     Dosage: 5 MG, 1X/DAY
     Route: 048
  2. CELIPROLOL HYDROCHLORIDE [Concomitant]
     Active Substance: CELIPROLOL HYDROCHLORIDE
     Dosage: 100 MG, 1X/DAY
     Route: 048
  3. DEPAS [Suspect]
     Active Substance: ETIZOLAM
     Dosage: 0.5 MG, 3X/DAY
     Route: 048
     Dates: end: 20160405
  4. LENDORMIN [Concomitant]
     Active Substance: BROTIZOLAM
     Dosage: 0.25 MG, 1X/DAY
     Route: 048
  5. MYSLEE [Concomitant]
     Active Substance: ZOLPIDEM TARTRATE
     Dosage: 10 MG, 1X/DAY
     Route: 048
  6. LYRICA [Suspect]
     Active Substance: PREGABALIN
     Dosage: 25 MG, 2X/DAY
     Route: 048
     Dates: end: 20160405
  7. CANDESARTAN [Concomitant]
     Active Substance: CANDESARTAN
     Dosage: 12 MG, 1X/DAY
     Route: 048
  8. LIMAPROST ALFADEX [Concomitant]
     Active Substance: LIMAPROST
     Dosage: 5 UG, 3X/DAY
     Route: 048
  9. LEXAPRO [Concomitant]
     Active Substance: ESCITALOPRAM OXALATE
     Dosage: 10 MG, 1X/DAY
     Route: 048
  10. OURENGEDOKUTOU [Concomitant]
     Dosage: 2 G, 1X/DAY
     Route: 048
  11. METHYCOBAL [Concomitant]
     Active Substance: METHYLCOBALAMIN
     Dosage: 500 UG, 3X/DAY
     Route: 048
  12. YOKUKANSANKACHINPIHANGE [Concomitant]
     Dosage: 2.5 G, 2X/DAY
     Route: 048

REACTIONS (20)
  - Hypokalaemia [Recovering/Resolving]
  - Alanine aminotransferase increased [Unknown]
  - Myoglobin urine present [Unknown]
  - Myalgia [Recovering/Resolving]
  - Blood creatine phosphokinase increased [Unknown]
  - Blood creatinine increased [Unknown]
  - Muscular weakness [Recovering/Resolving]
  - Myoglobin blood increased [Unknown]
  - Dehydration [Recovering/Resolving]
  - Chromaturia [Recovering/Resolving]
  - Blood urine present [Recovering/Resolving]
  - Aldolase increased [Unknown]
  - Asthenia [Recovering/Resolving]
  - Mobility decreased [Recovering/Resolving]
  - Electrolyte imbalance [Recovering/Resolving]
  - Aspartate aminotransferase increased [Unknown]
  - Rhabdomyolysis [Recovering/Resolving]
  - Blood lactate dehydrogenase increased [Unknown]
  - Blood urea increased [Unknown]
  - Blood phosphorus decreased [Unknown]

NARRATIVE: CASE EVENT DATE: 20160404
